FAERS Safety Report 10357067 (Version 1)
Quarter: 2014Q3

REPORT INFORMATION
  Report Type: Spontaneous
  Country: US (occurrence: US)
  Receive Date: 20140801
  Receipt Date: 20140801
  Transmission Date: 20150326
  Serious: Yes (Other)
  Sender: FDA-Public Use
  Company Number: US-PFIZER INC-2014211338

PATIENT
  Age: 52 Year
  Sex: Female
  Weight: 62.13 kg

DRUGS (1)
  1. LYRICA [Suspect]
     Active Substance: PREGABALIN
     Indication: FIBROMYALGIA
     Dosage: 75 MG, 2X/DAY
     Route: 048
     Dates: start: 20140722, end: 20140727

REACTIONS (11)
  - Anaphylactic reaction [Unknown]
  - Irritability [Unknown]
  - Headache [Unknown]
  - Personality change [Unknown]
  - Nausea [Unknown]
  - Disturbance in attention [Unknown]
  - Drug intolerance [Unknown]
  - Fatigue [Unknown]
  - Insomnia [Unknown]
  - Abdominal discomfort [Unknown]
  - Feeling abnormal [Unknown]

NARRATIVE: CASE EVENT DATE: 201407
